FAERS Safety Report 7990577 (Version 4)
Quarter: 2012Q4

REPORT INFORMATION
  Report Type: Spontaneous
  Country: JP (occurrence: None)
  Receive Date: 20110525
  Receipt Date: 20120529
  Transmission Date: 20130627
  Serious: Yes (Other)
  Sender: FDA-Public Use
  Company Number: JP-2011-10757

PATIENT
  Age: 54 Year
  Sex: Male
  Weight: 58 kg

DRUGS (11)
  1. SAMSCA [Suspect]
     Dosage: 7.5 MG MILLIGRAM(S), QD, ORAL ; 30 MILLIGRAM(S), DAILY DOSE, ORAL
     Route: 048
     Dates: start: 20110316, end: 20110317
  2. SAMSCA [Suspect]
     Dosage: 7.5 MG MILLIGRAM(S), QD, ORAL ; 30 MILLIGRAM(S), DAILY DOSE, ORAL
  3. TORSEMIDE [Concomitant]
  4. TIARAMIDE HYDROCHLORIDE [Concomitant]
  5. MEQUITAZINE [Concomitant]
  6. MUCODYNE [Concomitant]
  7. URSO 250 [Concomitant]
  8. ATARAX [Concomitant]
  9. ALLEGRA [Concomitant]
  10. SOLDEM [Concomitant]
  11. LASIX [Concomitant]

REACTIONS (5)
  - Alanine aminotransferase increased [None]
  - Liver disorder [None]
  - Pleural effusion [None]
  - Cardiac failure [None]
  - Eosinophil count increased [None]
